FAERS Safety Report 4595619-1 (Version None)
Quarter: 2005Q1

REPORT INFORMATION
  Report Type: 
  Country: None (occurrence: None)
  Receive Date: 20050223
  Receipt Date: 20050223
  Transmission Date: 20050727
  Serious: Yes (Life-Threatening)
  Sender: FDA-Public Use
  Company Number: None

PATIENT
  Age: 49 Year
  Sex: Male
  Weight: 89 kg

DRUGS (2)
  1. RIFAMPIN [Suspect]
     Indication: STAPHYLOCOCCAL INFECTION
     Dosage: 600 MG PO QD
     Dates: start: 20041107, end: 20041111
  2. AZTREONAM [Suspect]
     Dosage: 1G IV Q8 H
     Route: 042
     Dates: start: 20041109, end: 20041111

REACTIONS (5)
  - ALANINE AMINOTRANSFERASE INCREASED [None]
  - ASPARTATE AMINOTRANSFERASE INCREASED [None]
  - ENDOCARDITIS [None]
  - HAEMOLYSIS [None]
  - TRANSAMINASES INCREASED [None]
